FAERS Safety Report 8622751-5 (Version None)
Quarter: 2012Q3

REPORT INFORMATION
  Report Type: 
  Country: None (occurrence: None)
  Receive Date: 20120827
  Receipt Date: 20120820
  Transmission Date: 20120928
  Serious: Yes (Life-Threatening, Hospitalization)
  Sender: FDA-Public Use
  Company Number: RO-JNJFOC-20120711085

PATIENT
  Sex: Male
  Weight: 85 kg

DRUGS (4)
  1. RISPERDAL [Suspect]
     Indication: PRODUCT USED FOR UNKNOWN INDICATION
     Route: 048
     Dates: start: 20120716
  2. LORAZEPAM [Concomitant]
     Indication: PRODUCT USED FOR UNKNOWN INDICATION
     Route: 048
     Dates: start: 20120504, end: 20120518
  3. RISPERIDONE [Suspect]
     Route: 030
     Dates: start: 20120504, end: 20120704
  4. RISPERIDONE [Suspect]
     Indication: SCHIZOPHRENIA
     Route: 030

REACTIONS (4)
  - PLEURISY [None]
  - BLOOD PRESSURE INCREASED [None]
  - HOSPITALISATION [None]
  - CATATONIA [None]
